FAERS Safety Report 11078325 (Version 1)
Quarter: 2015Q2

REPORT INFORMATION
  Report Type: Spontaneous
  Country: US (occurrence: None)
  Receive Date: 20150429
  Receipt Date: 20150429
  Transmission Date: 20150821
  Serious: Yes (Disabling)
  Sender: FDA-Public Use
  Company Number: None

PATIENT
  Age: 72 Year
  Sex: Male
  Weight: 113.4 kg

DRUGS (8)
  1. NEURONTIN [Suspect]
     Active Substance: GABAPENTIN
     Indication: NEUROPATHY PERIPHERAL
     Dates: start: 20150209, end: 20150401
  2. ATORVASTATIN [Concomitant]
     Active Substance: ATORVASTATIN
  3. CALCIUM [Concomitant]
     Active Substance: CALCIUM
  4. FENOFIBRATE. [Concomitant]
     Active Substance: FENOFIBRATE
  5. CQ10 [Concomitant]
     Active Substance: UBIDECARENONE
  6. IRON [Concomitant]
     Active Substance: IRON
  7. AMLODIPINE [Concomitant]
     Active Substance: AMLODIPINE BESYLATE
  8. VIT. C [Concomitant]

REACTIONS (5)
  - Product quality issue [None]
  - Condition aggravated [None]
  - Product substitution issue [None]
  - Drug ineffective [None]
  - Hypoaesthesia [None]

NARRATIVE: CASE EVENT DATE: 20150209
